FAERS Safety Report 19240099 (Version 1)
Quarter: 2021Q2

REPORT INFORMATION
  Report Type: Spontaneous
  Country: US (occurrence: US)
  Receive Date: 20210511
  Receipt Date: 20210511
  Transmission Date: 20210717
  Serious: No
  Sender: FDA-Public Use
  Company Number: US-APOTEX-2021AP009981

PATIENT
  Sex: Male

DRUGS (1)
  1. AZELASTINE HCL NASAL SOLUTION [Suspect]
     Active Substance: AZELASTINE HYDROCHLORIDE
     Indication: PRODUCT USED FOR UNKNOWN INDICATION
     Dosage: UNK, QD (2 SPRAYS IN EACH NOSTRIL)
     Route: 045

REACTIONS (3)
  - Vomiting [Recovered/Resolved]
  - Dry mouth [Recovered/Resolved]
  - Nausea [Recovered/Resolved]
